FAERS Safety Report 9336005 (Version 3)
Quarter: 2013Q3

REPORT INFORMATION
  Report Type: Report from Study
  Country: CA (occurrence: CA)
  Receive Date: 20130607
  Receipt Date: 20130912
  Transmission Date: 20140515
  Serious: Yes (Other)
  Sender: FDA-Public Use
  Company Number: CA-ROCHE-1233082

PATIENT
  Sex: Male
  Weight: 83.9 kg

DRUGS (2)
  1. RITUXAN [Suspect]
     Indication: LYMPHOMA
     Route: 042
     Dates: start: 20120815, end: 20121128
  2. AVODART [Concomitant]

REACTIONS (4)
  - Wound [Recovering/Resolving]
  - Impaired healing [Recovering/Resolving]
  - Cellulitis [Recovered/Resolved]
  - Squamous cell carcinoma [Unknown]
